FAERS Safety Report 23284296 (Version 1)
Quarter: 2023Q4

REPORT INFORMATION
  Report Type: Report from Study
  Country: VN (occurrence: VN)
  Receive Date: 20231211
  Receipt Date: 20231211
  Transmission Date: 20240109
  Serious: Yes (Other)
  Sender: FDA-Public Use
  Company Number: VN-JNJFOC-20230965624

PATIENT
  Age: 40 Year
  Sex: Female

DRUGS (1)
  1. DARZALEX [Suspect]
     Active Substance: DARATUMUMAB
     Indication: Plasma cell myeloma refractory
     Route: 042

REACTIONS (2)
  - Leukopenia [Recovered/Resolved]
  - Blood stem cell harvest [Unknown]

NARRATIVE: CASE EVENT DATE: 20230926
